FAERS Safety Report 16189036 (Version 4)
Quarter: 2019Q3

REPORT INFORMATION
  Report Type: Spontaneous
  Country: US (occurrence: US)
  Receive Date: 20190412
  Receipt Date: 20190930
  Transmission Date: 20191004
  Serious: No
  Sender: FDA-Public Use
  Company Number: US-HTU-2019US018556

PATIENT
  Age: 64 Year
  Sex: Male

DRUGS (6)
  1. AMOXICILLIN. [Concomitant]
     Active Substance: AMOXICILLIN
     Dosage: 250 MILLIGRAM
  2. COZAAR [Concomitant]
     Active Substance: LOSARTAN POTASSIUM
     Dosage: 10 MILLIGRAM
  3. VALCHLOR [Suspect]
     Active Substance: MECHLORETHAMINE
     Indication: CUTANEOUS T-CELL LYMPHOMA
     Dosage: ONCE DAILY
     Route: 061
     Dates: start: 20190210, end: 20190408
  4. COUMADIN [Concomitant]
     Active Substance: WARFARIN SODIUM
     Dosage: 2 MILLIGRAM
  5. LOPRESSOR [Concomitant]
     Active Substance: METOPROLOL TARTRATE
     Dosage: 50 MILLIGRAM
  6. MULTIVITAMIN                       /00097801/ [Concomitant]
     Active Substance: VITAMINS
     Dosage: 1 TAB

REACTIONS (3)
  - Condition aggravated [Recovered/Resolved]
  - Skin weeping [Recovered/Resolved]
  - Pruritus [Unknown]

NARRATIVE: CASE EVENT DATE: 20190214
